FAERS Safety Report 5298743-3 (Version None)
Quarter: 2007Q2

REPORT INFORMATION
  Report Type: 
  Country: None (occurrence: None)
  Receive Date: 20070417
  Receipt Date: 20070410
  Transmission Date: 20071010
  Serious: Yes (Other)
  Sender: FDA-Public Use
  Company Number: CN-BAYER-200712078GDS

PATIENT
  Age: 71 Year
  Sex: Male
  Weight: 92 kg

DRUGS (10)
  1. SORAFENIB [Suspect]
     Indication: RENAL CELL CARCINOMA STAGE UNSPECIFIED
     Dosage: TOTAL DAILY DOSE: 800 MG
     Route: 048
     Dates: start: 20060821, end: 20061128
  2. SORAFENIB [Suspect]
     Dosage: TOTAL DAILY DOSE: 800 MG
     Route: 048
     Dates: start: 20061225, end: 20070108
  3. SORAFENIB [Suspect]
     Dosage: TOTAL DAILY DOSE: 800 MG
     Route: 048
     Dates: start: 20070205, end: 20070221
  4. SORAFENIB [Suspect]
     Dosage: TOTAL DAILY DOSE: 800 MG
     Route: 048
     Dates: start: 20070304, end: 20070402
  5. KA BO PIAN (TRADITIONAL DRUG) [Concomitant]
     Indication: HYPERTENSION
     Route: 048
     Dates: start: 20061226
  6. REPAGLINIDE [Concomitant]
     Indication: DIABETES MELLITUS
     Route: 048
     Dates: start: 20061226
  7. BAO SHEN KANG (TRADITIONAL DRUG) [Concomitant]
     Indication: RENAL IMPAIRMENT
     Route: 048
     Dates: start: 20061226
  8. FU FANG DAN SHEN PIAN (TRADITIONAL DRUG) [Concomitant]
     Indication: THROMBOSIS PROPHYLAXIS
     Route: 048
     Dates: start: 20070205
  9. WEI NAO LU TONG (TRADITIONAL DRUG) [Concomitant]
     Indication: THROMBOSIS PROPHYLAXIS
     Route: 048
     Dates: start: 20070205
  10. YUN NAN BAI YAO (TRADITIONAL DRUG) [Concomitant]
     Indication: HAEMOPTYSIS
     Route: 048
     Dates: start: 20070320, end: 20070320

REACTIONS (1)
  - SUPRAVENTRICULAR TACHYCARDIA [None]
